FAERS Safety Report 19178403 (Version 1)
Quarter: 2021Q2

REPORT INFORMATION
  Report Type: Spontaneous
  Country: US (occurrence: US)
  Receive Date: 20210426
  Receipt Date: 20210426
  Transmission Date: 20210717
  Serious: Yes (Hospitalization)
  Sender: FDA-Public Use
  Company Number: US-TEVA-2021-US-1904634

PATIENT
  Age: 7 Month
  Sex: Female

DRUGS (3)
  1. ETOPOSIDE. [Suspect]
     Active Substance: ETOPOSIDE
     Indication: ACUTE MYELOID LEUKAEMIA
     Dosage: AS A PART OF ADE REGIMEN; ON DAY1 TO DAY5
     Route: 065
  2. DAUNORUBICIN [Suspect]
     Active Substance: DAUNORUBICIN
     Indication: ACUTE MYELOID LEUKAEMIA
     Dosage: AS A PART OF ADE REGIMEN; ON DAY1, DAY3 AND DAY5
     Route: 065
  3. CYTARABINE. [Suspect]
     Active Substance: CYTARABINE
     Indication: ACUTE MYELOID LEUKAEMIA
     Dosage: 200 MG/M2 DAILY; AS A PART OF ADE REGIME; EVERY 12HOURS DAY1 TO DAY10
     Route: 065

REACTIONS (1)
  - Bacterial sepsis [Recovered/Resolved]
